FAERS Safety Report 5662461-X (Version None)
Quarter: 2008Q1

REPORT INFORMATION
  Report Type: 
  Country: None (occurrence: None)
  Receive Date: 20080313
  Receipt Date: 20080303
  Transmission Date: 20080703
  Serious: Yes (Other)
  Sender: FDA-Public Use
  Company Number: PHNR2008AU00456

PATIENT
  Age: 16 Year
  Sex: Female

DRUGS (3)
  1. ASCORBIC ACID [Concomitant]
     Dosage: 500 MG DAILY
     Dates: start: 20060101, end: 20080101
  2. DESFERAL [Suspect]
     Indication: IRON OVERLOAD
     Dosage: 50 MG/KG/DAY
     Route: 042
     Dates: start: 20071123
  3. DESFERAL [Suspect]
     Route: 058

REACTIONS (4)
  - HEPATIC SIDEROSIS [None]
  - HYPOPHOSPHATAEMIA [None]
  - URINE PHOSPHATE INCREASED [None]
  - URINE PROTEIN/CREATININE RATIO INCREASED [None]
